FAERS Safety Report 5463449-4 (Version None)
Quarter: 2007Q3

REPORT INFORMATION
  Report Type: 
  Country: None (occurrence: None)
  Receive Date: 20070920
  Receipt Date: 20070907
  Transmission Date: 20080115
  Serious: Yes (Hospitalization, Other)
  Sender: FDA-Public Use
  Company Number: US-ELI_LILLY_AND_COMPANY-US200709001463

PATIENT
  Age: 41 Year
  Sex: Male
  Weight: 86.167 kg

DRUGS (2)
  1. CYMBALTA [Suspect]
     Indication: PAIN
     Dosage: 30 MG, UNK
     Dates: start: 20061001
  2. CYMBALTA [Suspect]
     Dosage: 60 MG, UNK
     Dates: end: 20070301

REACTIONS (9)
  - ANORGASMIA [None]
  - ASPIRATION [None]
  - DYSPHAGIA [None]
  - OESOPHAGEAL STENOSIS [None]
  - PAIN [None]
  - PNEUMONIA [None]
  - SOMNOLENCE [None]
  - URINARY RETENTION [None]
  - VISION BLURRED [None]
